FAERS Safety Report 4425054-8 (Version None)
Quarter: 2004Q3

REPORT INFORMATION
  Report Type: 
  Country: None (occurrence: None)
  Receive Date: 20040810
  Receipt Date: 20040726
  Transmission Date: 20050211
  Serious: Yes (Hospitalization)
  Sender: FDA-Public Use
  Company Number: 702030

PATIENT
  Age: 71 Year
  Sex: Female

DRUGS (2)
  1. AMEVIVE [Suspect]
     Indication: PSORIASIS
     Dosage: 15 MG QW IM
     Route: 030
     Dates: start: 20030101, end: 20031201
  2. AMEVIVE [Suspect]
     Indication: PSORIASIS
     Dosage: 15 MG QW IM
     Route: 030
     Dates: start: 20040310, end: 20040512

REACTIONS (4)
  - CHRONIC OBSTRUCTIVE AIRWAYS DISEASE EXACERBATED [None]
  - PNEUMONIA [None]
  - RESPIRATORY FAILURE [None]
  - UPPER RESPIRATORY TRACT INFECTION [None]
